FAERS Safety Report 12640933 (Version 2)
Quarter: 2017Q3

REPORT INFORMATION
  Report Type: Spontaneous
  Country: US (occurrence: US)
  Receive Date: 20160810
  Receipt Date: 20170927
  Transmission Date: 20171127
  Serious: Yes (Hospitalization, Other)
  Sender: FDA-Public Use
  Company Number: US-GLAXOSMITHKLINE-US2016112288

PATIENT
  Age: 71 Year
  Sex: Female

DRUGS (11)
  1. BREO ELLIPTA [Suspect]
     Active Substance: FLUTICASONE FUROATE\VILANTEROL TRIFENATATE
     Dosage: 200/25 UG
  2. PREDNISONE. [Suspect]
     Active Substance: PREDNISONE
  3. ADVAIR DISKUS [Suspect]
     Active Substance: FLUTICASONE PROPIONATE\SALMETEROL XINAFOATE
     Indication: ASTHMA
     Dosage: 1 PUFF(S), BID
     Route: 055
     Dates: start: 2005
  4. METOPROLOL. [Concomitant]
     Active Substance: METOPROLOL
  5. BREO ELLIPTA [Suspect]
     Active Substance: FLUTICASONE FUROATE\VILANTEROL TRIFENATATE
     Indication: ASTHMA
     Dosage: 1 PUFF(S), QD
     Route: 055
     Dates: start: 2014
  6. CARDIZEM [Suspect]
     Active Substance: DILTIAZEM HYDROCHLORIDE
     Indication: PRODUCT USED FOR UNKNOWN INDICATION
  7. PRADAXA [Concomitant]
     Active Substance: DABIGATRAN ETEXILATE MESYLATE
  8. FUROSEMIDE. [Concomitant]
     Active Substance: FUROSEMIDE
  9. XOLAIR [Suspect]
     Active Substance: OMALIZUMAB
     Dosage: UNK, CYC
     Route: 042
     Dates: start: 2007
  10. CLARITIN [Concomitant]
     Active Substance: LORATADINE
  11. SPIRONOLACTONE. [Concomitant]
     Active Substance: SPIRONOLACTONE

REACTIONS (16)
  - Pneumonia [Recovered/Resolved]
  - Heart rate decreased [Unknown]
  - Dyspnoea [Not Recovered/Not Resolved]
  - Atrial fibrillation [Recovered/Resolved]
  - Dysphonia [Not Recovered/Not Resolved]
  - Malaise [Unknown]
  - Lung infection [Unknown]
  - Dysphagia [Not Recovered/Not Resolved]
  - Oropharyngeal pain [Unknown]
  - Nodule [Not Recovered/Not Resolved]
  - Diverticulitis [Recovered/Resolved]
  - Swelling [Not Recovered/Not Resolved]
  - Cardiac assistance device user [Recovered/Resolved]
  - Pulmonary mass [Unknown]
  - Erosive oesophagitis [Not Recovered/Not Resolved]
  - Gastrooesophageal reflux disease [Not Recovered/Not Resolved]

NARRATIVE: CASE EVENT DATE: 2016
